FAERS Safety Report 21180023 (Version 1)
Quarter: 2022Q3

REPORT INFORMATION
  Report Type: Spontaneous
  Country: US (occurrence: None)
  Receive Date: 20220805
  Receipt Date: 20220805
  Transmission Date: 20221027
  Serious: Yes (Life-Threatening, Hospitalization)
  Sender: FDA-Public Use
  Company Number: None

PATIENT
  Age: 57 Year
  Sex: Male
  Weight: 81.19 kg

DRUGS (1)
  1. LISINOPRIL [Suspect]
     Active Substance: LISINOPRIL
     Indication: Hypertension
     Dosage: OE TAB EVERY DAY PO
     Route: 048
     Dates: start: 20191127, end: 20220227

REACTIONS (2)
  - Angioedema [None]
  - Dysphagia [None]

NARRATIVE: CASE EVENT DATE: 20220227
